FAERS Safety Report 7150844-0 (Version None)
Quarter: 2010Q4

REPORT INFORMATION
  Report Type: 
  Country: None (occurrence: None)
  Receive Date: 20101124
  Receipt Date: 20101115
  Transmission Date: 20110411
  Serious: Yes (Other)
  Sender: FDA-Public Use
  Company Number: 2010-US-0075

PATIENT
  Sex: Female

DRUGS (2)
  1. SANCUSO [Suspect]
     Indication: PROPHYLAXIS OF NAUSEA AND VOMITING
     Dosage: TRANSDERMAL
     Route: 062
  2. CHEMOTHERAPY NOS [Concomitant]

REACTIONS (1)
  - CONVULSION [None]
